FAERS Safety Report 16744325 (Version 2)
Quarter: 2019Q3

REPORT INFORMATION
  Report Type: Spontaneous
  Country: DE (occurrence: DE)
  Receive Date: 20190827
  Receipt Date: 20190909
  Transmission Date: 20191005
  Serious: Yes (Other)
  Sender: FDA-Public Use
  Company Number: DE-AMGEN-DEUSP2019135726

PATIENT
  Sex: Male

DRUGS (1)
  1. NEULASTA [Suspect]
     Active Substance: PEGFILGRASTIM
     Indication: PRODUCT USED FOR UNKNOWN INDICATION
     Dosage: 6 MILLIGRAM (0.6MILLILITER)
     Route: 058

REACTIONS (35)
  - Aspartate aminotransferase increased [Unknown]
  - Hyperkalaemia [Unknown]
  - Blood pressure systolic increased [Unknown]
  - Oropharyngeal pain [Unknown]
  - Toothache [Unknown]
  - Gastroenteritis [Unknown]
  - Gamma-glutamyltransferase increased [Unknown]
  - Discomfort [Unknown]
  - Neck pain [Unknown]
  - Arthralgia [Unknown]
  - Back pain [Unknown]
  - Musculoskeletal pain [Unknown]
  - Blood pressure increased [Unknown]
  - Haematuria [Unknown]
  - Dizziness [Unknown]
  - Influenza [Unknown]
  - Nausea [Unknown]
  - Pain in extremity [Unknown]
  - Nasopharyngitis [Unknown]
  - Myalgia [Unknown]
  - Cough [Unknown]
  - Blood creatine phosphokinase increased [Unknown]
  - Haematoma [Unknown]
  - Blood bilirubin increased [Unknown]
  - Chest pain [Unknown]
  - Puncture site pain [Unknown]
  - Diarrhoea [Unknown]
  - Hypoglycaemia [Unknown]
  - C-reactive protein increased [Unknown]
  - Paraesthesia [Unknown]
  - Arthropod sting [Unknown]
  - Chest discomfort [Unknown]
  - Ocular hyperaemia [Unknown]
  - Headache [Unknown]
  - Alanine aminotransferase increased [Unknown]
